FAERS Safety Report 19644676 (Version 2)
Quarter: 2021Q3

REPORT INFORMATION
  Report Type: Report from Study
  Country: US (occurrence: US)
  Receive Date: 20210802
  Receipt Date: 20210923
  Transmission Date: 20211014
  Serious: No
  Sender: FDA-Public Use
  Company Number: US-ACADIA PHARMACEUTICALS INC.-ACA-2021-PIM-002540

PATIENT
  Sex: Male

DRUGS (10)
  1. AMANTADINE. [Concomitant]
     Active Substance: AMANTADINE HYDROCHLORIDE
  2. NUPLAZID [Suspect]
     Active Substance: PIMAVANSERIN TARTRATE
     Indication: PARKINSON^S DISEASE
     Dosage: 34 MILLIGRAM, QD
     Route: 048
     Dates: start: 20210408
  3. ROPINIROLE. [Concomitant]
     Active Substance: ROPINIROLE
  4. SELEGILINE [Concomitant]
     Active Substance: SELEGILINE
  5. NUPLAZID [Suspect]
     Active Substance: PIMAVANSERIN TARTRATE
     Dosage: 34 MILLIGRAM, QD
     Route: 048
     Dates: start: 202106
  6. KETOCONAZOLE. [Concomitant]
     Active Substance: KETOCONAZOLE
  7. PREDNISOLONE. [Concomitant]
     Active Substance: PREDNISOLONE
  8. COENZYME Q10 [Concomitant]
     Active Substance: DIETARY SUPPLEMENT\UBIDECARENONE
  9. PROBIOTIC [BIFIDOBACTERIUM INFANTIS;LACTOBACILLUS ACIDOPHILUS] [Concomitant]
  10. CARBIDOPA/LEVODOPA [Concomitant]
     Active Substance: CARBIDOPA\LEVODOPA
     Dosage: 25?100 MG

REACTIONS (3)
  - Somnolence [Not Recovered/Not Resolved]
  - Peripheral swelling [Unknown]
  - Confusional state [Unknown]

NARRATIVE: CASE EVENT DATE: 2021
